FAERS Safety Report 23133403 (Version 1)
Quarter: 2023Q4

REPORT INFORMATION
  Report Type: Report from Study
  Country: US (occurrence: US)
  Receive Date: 20231101
  Receipt Date: 20231101
  Transmission Date: 20240109
  Serious: Yes (Other)
  Sender: FDA-Public Use
  Company Number: US-Accord-387744

PATIENT
  Sex: Male
  Weight: 136.08 kg

DRUGS (1)
  1. CLOZAPINE [Suspect]
     Active Substance: CLOZAPINE
     Indication: Schizophrenia
     Dosage: 100MG BY MOUTH EVERY MORNING, 200MG BY MOUTH IN THE EVENING

REACTIONS (2)
  - Somnolence [Unknown]
  - Obesity [Unknown]
